FAERS Safety Report 12523114 (Version 1)
Quarter: 2016Q3

REPORT INFORMATION
  Report Type: Report from Study
  Country: DE (occurrence: DE)
  Receive Date: 20160701
  Receipt Date: 20160701
  Transmission Date: 20161109
  Serious: Yes (Hospitalization)
  Sender: FDA-Public Use
  Company Number: US-ASTRAZENECA-2016SE16543

PATIENT
  Age: 117 Day
  Sex: Female
  Weight: .8 kg

DRUGS (10)
  1. SYNAGIS [Suspect]
     Active Substance: PALIVIZUMAB
     Indication: ANTIVIRAL PROPHYLAXIS
     Dosage: UNKNOWN
     Route: 030
     Dates: start: 20160408, end: 20160408
  2. SYNAGIS [Suspect]
     Active Substance: PALIVIZUMAB
     Indication: ANTIVIRAL PROPHYLAXIS
     Dosage: 40.0MG UNKNOWN
     Route: 030
     Dates: start: 20151113, end: 20151113
  3. SYNAGIS [Suspect]
     Active Substance: PALIVIZUMAB
     Indication: PREMATURE BABY
     Dosage: 40.0MG UNKNOWN
     Route: 030
     Dates: start: 20151113, end: 20151113
  4. SYNAGIS [Suspect]
     Active Substance: PALIVIZUMAB
     Indication: ANTIVIRAL PROPHYLAXIS
     Dosage: 57.0MG UNKNOWN
     Route: 030
     Dates: start: 20160114, end: 20160114
  5. SYNAGIS [Suspect]
     Active Substance: PALIVIZUMAB
     Indication: PREMATURE BABY
     Dosage: UNKNOWN
     Route: 030
     Dates: start: 20160408, end: 20160408
  6. SYNAGIS [Suspect]
     Active Substance: PALIVIZUMAB
     Indication: ANTIVIRAL PROPHYLAXIS
     Dosage: 45.0MG UNKNOWN
     Route: 030
     Dates: start: 20151214, end: 20151214
  7. SYNAGIS [Suspect]
     Active Substance: PALIVIZUMAB
     Indication: ANTIVIRAL PROPHYLAXIS
     Dosage: UNKNOWN
     Route: 030
     Dates: start: 20160211, end: 20160211
  8. SYNAGIS [Suspect]
     Active Substance: PALIVIZUMAB
     Indication: PREMATURE BABY
     Dosage: UNKNOWN
     Route: 030
     Dates: start: 20160211, end: 20160211
  9. SYNAGIS [Suspect]
     Active Substance: PALIVIZUMAB
     Indication: PREMATURE BABY
     Dosage: 45.0MG UNKNOWN
     Route: 030
     Dates: start: 20151214, end: 20151214
  10. SYNAGIS [Suspect]
     Active Substance: PALIVIZUMAB
     Indication: PREMATURE BABY
     Dosage: 57.0MG UNKNOWN
     Route: 030
     Dates: start: 20160114, end: 20160114

REACTIONS (4)
  - Respiratory tract congestion [Recovered/Resolved]
  - Selective eating disorder [Recovered/Resolved]
  - General physical health deterioration [Recovered/Resolved]
  - Respiratory syncytial virus bronchiolitis [Recovered/Resolved]

NARRATIVE: CASE EVENT DATE: 20160125
